FAERS Safety Report 19035041 (Version 2)
Quarter: 2021Q3

REPORT INFORMATION
  Report Type: Other
  Country: US (occurrence: US)
  Receive Date: 20210320
  Receipt Date: 20210921
  Transmission Date: 20211014
  Serious: No
  Sender: FDA-Public Use
  Company Number: US-ACORDA-ACO_167420_2021

PATIENT
  Sex: Male

DRUGS (1)
  1. INBRIJA [Suspect]
     Active Substance: LEVODOPA
     Indication: PARKINSON^S DISEASE
     Dosage: 84 MILLIGRAM, AS NEEDED (DO NOT EXCEED 5 DOSES IN 1 DAY)
     Route: 065
     Dates: start: 20201217

REACTIONS (2)
  - Condition aggravated [Unknown]
  - Adverse event [Unknown]
